FAERS Safety Report 10199085 (Version 1)
Quarter: 2014Q2

REPORT INFORMATION
  Report Type: Spontaneous
  Country: US (occurrence: US)
  Receive Date: 20140527
  Receipt Date: 20140527
  Transmission Date: 20141212
  Serious: Yes (Other)
  Sender: FDA-Public Use
  Company Number: US-ELI_LILLY_AND_COMPANY-US201405005478

PATIENT
  Sex: Female

DRUGS (6)
  1. CYMBALTA [Suspect]
     Indication: ANXIETY
     Dosage: 30 MG, QD
     Route: 065
     Dates: start: 2008
  2. CYMBALTA [Suspect]
     Dosage: 60 MG, QD
     Route: 065
  3. CYMBALTA [Suspect]
     Dosage: 90 MG, QD
     Route: 065
  4. CYMBALTA [Suspect]
     Dosage: 60 MG, QD
     Route: 065
  5. SYNTHROID [Concomitant]
     Indication: THYROID DISORDER
     Dosage: UNK, UNKNOWN
     Route: 065
  6. NEXIUM                             /01479302/ [Concomitant]
     Indication: GASTROOESOPHAGEAL REFLUX DISEASE
     Dosage: UNK, UNKNOWN
     Route: 065

REACTIONS (4)
  - Hepatotoxicity [Unknown]
  - Hepatic enzyme increased [Unknown]
  - Swelling [Not Recovered/Not Resolved]
  - Paraesthesia [Unknown]
